FAERS Safety Report 4977775-6 (Version None)
Quarter: 2006Q1

REPORT INFORMATION
  Report Type: 
  Country: None (occurrence: None)
  Receive Date: 20060215
  Receipt Date: 20050811
  Transmission Date: 20060701
  Serious: Yes (Other)
  Sender: FDA-Public Use
  Company Number: MC200500711

PATIENT
  Age: 52 Year
  Sex: Female
  Weight: 75.4332 kg

DRUGS (3)
  1. ANGIOMAX [Suspect]
     Dosage: SEE IMAGE
     Route: 042
     Dates: start: 20050720, end: 20050720
  2. PLAVIX [Concomitant]
  3. ASPIRIN [Concomitant]

REACTIONS (3)
  - ARTERIAL HAEMORRHAGE [None]
  - HYPERTENSION [None]
  - POST PROCEDURAL HAEMATOMA [None]
